FAERS Safety Report 5959904-0 (Version None)
Quarter: 2008Q4

REPORT INFORMATION
  Report Type: 
  Country: None (occurrence: None)
  Receive Date: 20081119
  Receipt Date: 20081119
  Transmission Date: 20090506
  Serious: Yes (Life-Threatening)
  Sender: FDA-Public Use
  Company Number: None

PATIENT
  Age: 55 Year
  Sex: Male
  Weight: 99 kg

DRUGS (9)
  1. MORPHINE [Suspect]
     Indication: PAIN
     Dosage: 0/2/10
     Dates: start: 20080715, end: 20080716
  2. SIMVASTATIN [Concomitant]
  3. NIACIN [Concomitant]
  4. EZETIMIBE [Concomitant]
  5. METOPROLOL TARTRATE [Concomitant]
  6. PHENOBARB [Concomitant]
  7. PHENYTOIN [Concomitant]
  8. PRIMIDONE [Concomitant]
  9. ATIVAN [Concomitant]

REACTIONS (1)
  - LOSS OF CONSCIOUSNESS [None]
